FAERS Safety Report 6649421-7 (Version None)
Quarter: 2010Q1

REPORT INFORMATION
  Report Type: 
  Country: None (occurrence: None)
  Receive Date: 20100324
  Receipt Date: 20100318
  Transmission Date: 20100710
  Serious: Yes (Other)
  Sender: FDA-Public Use
  Company Number: TR-ABBOTT-10P-161-0633189-00

PATIENT
  Age: 46 Year
  Sex: Female

DRUGS (10)
  1. VALPROATE SODIUM [Suspect]
     Indication: BIPOLAR DISORDER
  2. VALPROATE SODIUM [Suspect]
  3. VALPROATE SODIUM [Suspect]
  4. VALPROATE SODIUM [Suspect]
  5. QUETIAPINE [Concomitant]
     Indication: BIPOLAR DISORDER
  6. ZUCLOPENTHIXOL [Concomitant]
     Indication: BIPOLAR DISORDER
     Route: 030
  7. HALOPERIDOL [Concomitant]
     Indication: BIPOLAR DISORDER
  8. BIPERIDEN HYDROCHLORIDE TAB [Concomitant]
     Indication: BIPOLAR DISORDER
  9. ZIPRASIDONE HCL [Concomitant]
     Indication: BIPOLAR DISORDER
  10. LORAZEPAM [Concomitant]
     Indication: BIPOLAR DISORDER

REACTIONS (2)
  - DECREASED ACTIVITY [None]
  - DELIRIUM [None]
